FAERS Safety Report 7382203-X (Version None)
Quarter: 2011Q1

REPORT INFORMATION
  Report Type: 
  Country: None (occurrence: None)
  Receive Date: 20110329
  Receipt Date: 20101228
  Transmission Date: 20110831
  Serious: No
  Sender: FDA-Public Use
  Company Number: US-BAYER-2011-026240

PATIENT
  Sex: Female
  Weight: 82 kg

DRUGS (4)
  1. MULTIVITAMIN [Concomitant]
  2. BAYER ASPIRIN REGIMEN ADULT LOW STRENGTH [Concomitant]
  3. TRIFLEX [Concomitant]
     Dosage: UNK
  4. PHILLIPS' COLON HEALTH [Suspect]
     Indication: CONSTIPATION
     Dosage: DAILY DOSE 1 DF
     Route: 048

REACTIONS (1)
  - FLATULENCE [None]
